FAERS Safety Report 8261193 (Version 10)
Quarter: 2014Q1

REPORT INFORMATION
  Report Type: Report from Study
  Country: BR (occurrence: BR)
  Receive Date: 20111123
  Receipt Date: 20140109
  Transmission Date: 20141002
  Serious: Yes (Other)
  Sender: FDA-Public Use
  Company Number: BR-ROCHE-1013584

PATIENT
  Age: 60 Year
  Sex: Female

DRUGS (20)
  1. XOLAIR [Suspect]
     Indication: ASTHMA
     Route: 058
     Dates: start: 201011
  2. XOLAIR [Suspect]
     Route: 058
     Dates: start: 20110829
  3. XOLAIR [Suspect]
     Route: 058
     Dates: start: 201112
  4. XOLAIR [Suspect]
     Route: 058
     Dates: start: 20120511
  5. CLENIL-A [Suspect]
     Indication: PRODUCT USED FOR UNKNOWN INDICATION
     Route: 065
  6. PRELONE [Concomitant]
     Indication: PRODUCT USED FOR UNKNOWN INDICATION
     Route: 065
     Dates: start: 20110920, end: 20111025
  7. PRELONE [Concomitant]
     Route: 065
  8. PRELONE [Concomitant]
     Dosage: FOR 10 DAYS
     Route: 065
  9. PRELONE [Concomitant]
     Dosage: TAPERING DOSE
     Route: 065
  10. PRELONE [Concomitant]
     Route: 065
  11. SERETIDE [Concomitant]
     Dosage: 50/500 UG
     Route: 065
  12. COMBIVENT [Concomitant]
     Dosage: 20/120 MCG
     Route: 065
  13. LORATADINE [Concomitant]
     Route: 065
  14. HYDROCHLOROTHIAZIDE [Concomitant]
     Route: 065
  15. LOSARTAN POTASSIUM [Concomitant]
     Route: 065
  16. VERAPAMIL [Concomitant]
     Route: 065
  17. PANTOPRAZOLE [Concomitant]
     Route: 065
  18. DOMPERIDONE [Concomitant]
     Route: 065
  19. LEXOTAN [Concomitant]
     Route: 065
  20. PARACETAMOL [Concomitant]

REACTIONS (20)
  - Asthma [Not Recovered/Not Resolved]
  - Rhinitis allergic [Unknown]
  - Tremor [Unknown]
  - Gait disturbance [Unknown]
  - Lacrimation increased [Unknown]
  - Herpes zoster [Unknown]
  - Dysphonia [Not Recovered/Not Resolved]
  - Insomnia [Unknown]
  - Obstructive airways disorder [Not Recovered/Not Resolved]
  - Fatigue [Unknown]
  - Lung disorder [Unknown]
  - Tachycardia [Not Recovered/Not Resolved]
  - Respiratory distress [Not Recovered/Not Resolved]
  - Herpes virus infection [Unknown]
  - Incorrect dose administered [Unknown]
  - Muscle spasms [Unknown]
  - Immunodeficiency [Unknown]
  - Abdominal pain upper [Unknown]
  - Drug ineffective [Unknown]
  - Respiratory distress [Unknown]
